FAERS Safety Report 4448392-1 (Version None)
Quarter: 2004Q3

REPORT INFORMATION
  Report Type: 
  Country: None (occurrence: None)
  Receive Date: 20040730
  Receipt Date: 20040503
  Transmission Date: 20050211
  Serious: Yes (Other)
  Sender: FDA-Public Use
  Company Number: 2004-05-0369

PATIENT
  Age: 57 Year
  Sex: Male
  Weight: 84.8226 kg

DRUGS (1)
  1. INTRON A [Suspect]
     Indication: MALIGNANT MELANOMA
     Dosage: 40-20 MIU INTRAVENOUS
     Route: 042

REACTIONS (2)
  - LIVER FUNCTION TEST ABNORMAL [None]
  - RASH [None]
